FAERS Safety Report 8572332-7 (Version None)
Quarter: 2012Q3

REPORT INFORMATION
  Report Type: 
  Country: None (occurrence: None)
  Receive Date: 20120806
  Receipt Date: 20091113
  Transmission Date: 20120928
  Serious: Yes (Other)
  Sender: FDA-Public Use
  Company Number: CO-PFIZER INC-2012188307

PATIENT
  Age: 74 Year
  Sex: Female

DRUGS (4)
  1. ASPIRIN [Concomitant]
     Dosage: 100 MG EVERY 12 HOURS
  2. LIPITOR [Suspect]
     Indication: DYSLIPIDAEMIA
     Dosage: 20 MG EVERY 24 HOURS
  3. LOSARTAN [Concomitant]
     Dosage: 50 MG EVERY 12 HOURS
  4. METOPROLOL TARTRATE [Concomitant]
     Dosage: 50 MG EVERY 12 HOURS

REACTIONS (4)
  - NECK PAIN [None]
  - BUNDLE BRANCH BLOCK LEFT [None]
  - OEDEMA PERIPHERAL [None]
  - EYE PAIN [None]
